FAERS Safety Report 6307651-8 (Version None)
Quarter: 2009Q3

REPORT INFORMATION
  Report Type: 
  Country: None (occurrence: None)
  Receive Date: 20090813
  Receipt Date: 20090804
  Transmission Date: 20100115
  Serious: Yes (Hospitalization, Other)
  Sender: FDA-Public Use
  Company Number: PHHY2009FR33113

PATIENT
  Sex: Male

DRUGS (1)
  1. AREDIA [Suspect]
     Indication: THYROID CANCER METASTATIC
     Dosage: 90 MG, QMO
     Dates: start: 20090506

REACTIONS (6)
  - BLOOD AMYLASE INCREASED [None]
  - HYPERCALCAEMIA [None]
  - HYPONATRAEMIA [None]
  - LIPASE INCREASED [None]
  - LYMPHADENOPATHY [None]
  - PAIN [None]
